FAERS Safety Report 13396029 (Version 2)
Quarter: 2017Q2

REPORT INFORMATION
  Report Type: Report from Study
  Country: US (occurrence: US)
  Receive Date: 20170403
  Receipt Date: 20170607
  Transmission Date: 20170830
  Serious: Yes (Hospitalization, Other)
  Sender: FDA-Public Use
  Company Number: US-GILEAD-2017-0265341

PATIENT
  Age: 57 Year
  Sex: Female

DRUGS (3)
  1. AMBRISENTAN [Suspect]
     Active Substance: AMBRISENTAN
     Indication: PULMONARY ARTERIAL HYPERTENSION
     Dosage: 10 MG, QD
     Route: 048
     Dates: start: 20090527
  2. WARFARIN [Concomitant]
     Active Substance: WARFARIN
  3. RITUXAN [Suspect]
     Active Substance: RITUXIMAB
     Indication: PRODUCT USED FOR UNKNOWN INDICATION
     Dosage: UNK
     Route: 065
     Dates: start: 20170501

REACTIONS (11)
  - Anaemia [Recovering/Resolving]
  - White blood cell count increased [Unknown]
  - Influenza like illness [Unknown]
  - Asthenia [Unknown]
  - Thrombocytopenia [Recovering/Resolving]
  - Septic shock [Unknown]
  - Decreased appetite [Unknown]
  - Pyrexia [Unknown]
  - Hepatic enzyme abnormal [Unknown]
  - Coagulopathy [Unknown]
  - International normalised ratio increased [Unknown]
